FAERS Safety Report 7117173-2 (Version None)
Quarter: 2010Q4

REPORT INFORMATION
  Report Type: 
  Country: None (occurrence: None)
  Receive Date: 20101122
  Receipt Date: 20101111
  Transmission Date: 20110411
  Serious: Yes (Hospitalization)
  Sender: FDA-Public Use
  Company Number: CO-JNJFOC-20101000624

PATIENT
  Sex: Female

DRUGS (5)
  1. IBUPROFEN [Suspect]
     Indication: BACK PAIN
     Dosage: RECEIVED 10 DOSES
     Route: 048
  2. APIXABAN [Interacting]
     Indication: ARRHYTHMIA PROPHYLAXIS
  3. APIXABAN [Interacting]
  4. WARFARIN SODIUM [Interacting]
     Indication: ARRHYTHMIA PROPHYLAXIS
     Route: 048
  5. WARFARIN SODIUM [Interacting]
     Route: 048

REACTIONS (2)
  - DRUG INTERACTION [None]
  - SUBDURAL HAEMATOMA [None]
